FAERS Safety Report 18683765 (Version 22)
Quarter: 2024Q2

REPORT INFORMATION
  Report Type: Spontaneous
  Country: US (occurrence: US)
  Receive Date: 20201230
  Receipt Date: 20240627
  Transmission Date: 20240716
  Serious: Yes (Disabling, Other)
  Sender: FDA-Public Use
  Company Number: US-PFIZER INC-2020516206

PATIENT
  Age: 64 Year
  Sex: Female
  Weight: 90.26 kg

DRUGS (4)
  1. DEPO-ESTRADIOL [Suspect]
     Active Substance: ESTRADIOL CYPIONATE
     Indication: Hot flush
     Dosage: 5 MG, MONTHLY
     Dates: start: 2001
  2. DEPO-ESTRADIOL [Suspect]
     Active Substance: ESTRADIOL CYPIONATE
     Indication: Endocrine disorder
     Dosage: 5 MG, MONTHLY (EVERY 4 WEEKS)
     Route: 030
  3. DEPO-ESTRADIOL [Suspect]
     Active Substance: ESTRADIOL CYPIONATE
     Dosage: 1.5 OR 2CC ONE TIME A MONTH BY INJECTION
     Route: 030
  4. DEPO-ESTRADIOL [Suspect]
     Active Substance: ESTRADIOL CYPIONATE
     Dosage: 2.5CC, OR SOMETHING, ONCE A MONTH

REACTIONS (10)
  - Limb injury [Unknown]
  - Accident [Unknown]
  - Dyspnoea [Unknown]
  - Gait disturbance [Unknown]
  - Mood altered [Unknown]
  - Hot flush [Unknown]
  - Condition aggravated [Unknown]
  - Pain [Unknown]
  - Premenstrual syndrome [Unknown]
  - Inappropriate schedule of product administration [Unknown]

NARRATIVE: CASE EVENT DATE: 20190109
